FAERS Safety Report 15161050 (Version 1)
Quarter: 2018Q3

REPORT INFORMATION
  Report Type: Spontaneous
  Country: CH (occurrence: CH)
  Receive Date: 20180718
  Receipt Date: 20180718
  Transmission Date: 20181010
  Serious: No
  Sender: FDA-Public Use
  Company Number: CH-JAZZ-2018-CH-010270

PATIENT
  Age: 20 Year

DRUGS (1)
  1. XYREM [Suspect]
     Active Substance: SODIUM OXYBATE
     Indication: CIRCADIAN RHYTHM SLEEP DISORDER
     Dosage: UNKNOWN DOSE
     Route: 048

REACTIONS (1)
  - Off label use [Unknown]
